FAERS Safety Report 8824070 (Version 1)
Quarter: 2012Q4

REPORT INFORMATION
  Report Type: 
  Country: US (occurrence: US)
  Receive Date: 20121003
  Receipt Date: 20121003
  Transmission Date: 20130627
  Serious: No
  Sender: FDA-Public Use
  Company Number: US-009507513-1210USA000038

PATIENT
  Sex: Female

DRUGS (1)
  1. IMPLANON [Suspect]

REACTIONS (2)
  - Implant site pain [Unknown]
  - Medical device complication [Unknown]
